FAERS Safety Report 16630128 (Version 1)
Quarter: 2019Q3

REPORT INFORMATION
  Report Type: Spontaneous
  Country: BR (occurrence: BR)
  Receive Date: 20190725
  Receipt Date: 20190725
  Transmission Date: 20191004
  Serious: Yes (Death, Other)
  Sender: FDA-Public Use
  Company Number: PHHY2019BR166830

PATIENT
  Age: 58 Year
  Sex: Male
  Weight: 66 kg

DRUGS (8)
  1. DEXAMETHASONE. [Suspect]
     Active Substance: DEXAMETHASONE
     Indication: PLASMA CELL MYELOMA
     Dosage: UNK
     Route: 065
     Dates: start: 20190611
  2. GRANISETRON [Concomitant]
     Active Substance: GRANISETRON
     Indication: ELECTROCARDIOGRAM QT INTERVAL ABNORMAL
     Dosage: UNK
     Route: 065
  3. BORTEZOMIB. [Suspect]
     Active Substance: BORTEZOMIB
     Indication: PLASMA CELL MYELOMA
     Dosage: 1.3 MG/M2, UNK (1.3 MG/M? DILUTED IN 1.4 ML OF SALINE SOLUTION D1, D4, D8, D11)
     Route: 058
     Dates: start: 20190611, end: 20190611
  4. MUVINLAX [Concomitant]
     Active Substance: ELECTROLYTES NOS\POLYETHYLENE GLYCOL 3350
     Indication: PRODUCT USED FOR UNKNOWN INDICATION
     Dosage: UNK
     Route: 065
  5. BACTRIM [Concomitant]
     Active Substance: SULFAMETHOXAZOLE\TRIMETHOPRIM
     Indication: PRODUCT USED FOR UNKNOWN INDICATION
     Dosage: UNK
     Route: 065
  6. ACYCLOVIR. [Concomitant]
     Active Substance: ACYCLOVIR
     Indication: PRODUCT USED FOR UNKNOWN INDICATION
     Dosage: UNK
     Route: 065
  7. FAULDOXO [Suspect]
     Active Substance: DOXORUBICIN HYDROCHLORIDE
     Indication: PLASMA CELL MYELOMA
     Dosage: 9 MG/M2, UNK (9 MG/M? DILUTED IN 50 ML OF 5% GLYCOSATED SERUM, D1 TO D4)(RANGE OF 21 DAYS BETWEEN CY
     Route: 042
     Dates: start: 20190611, end: 20190612
  8. RIVOTRIL [Concomitant]
     Active Substance: CLONAZEPAM
     Indication: PRODUCT USED FOR UNKNOWN INDICATION
     Dosage: UNK
     Route: 065

REACTIONS (13)
  - Cardio-respiratory arrest [Fatal]
  - Crepitations [Unknown]
  - Polyuria [Unknown]
  - Nausea [Unknown]
  - Amyloidosis [Unknown]
  - Oxygen saturation decreased [Unknown]
  - Acute myocardial infarction [Fatal]
  - Cyanosis [Unknown]
  - Secretion discharge [Unknown]
  - Tremor [Unknown]
  - Product use in unapproved indication [Unknown]
  - Mucosal discolouration [Unknown]
  - Dyspnoea [Unknown]

NARRATIVE: CASE EVENT DATE: 20190612
